FAERS Safety Report 25067035 (Version 1)
Quarter: 2025Q1

REPORT INFORMATION
  Report Type: Spontaneous
  Country: US (occurrence: US)
  Receive Date: 20250312
  Receipt Date: 20250312
  Transmission Date: 20250409
  Serious: No
  Sender: LEO PHARM
  Company Number: US-LEO Pharma-378286

PATIENT
  Age: 45 Year
  Sex: Male

DRUGS (1)
  1. ADBRY [Suspect]
     Active Substance: TRALOKINUMAB-LDRM
     Indication: Eczema herpeticum
     Dosage: TREATMENT IS ONGOING
     Dates: start: 202302

REACTIONS (2)
  - Eczema [Recovered/Resolved]
  - Product use in unapproved indication [Unknown]
